FAERS Safety Report 18930430 (Version 1)
Quarter: 2021Q1

REPORT INFORMATION
  Report Type: Other
  Country: CA (occurrence: CA)
  Receive Date: 20210224
  Receipt Date: 20210224
  Transmission Date: 20210420
  Serious: Yes (Other)
  Sender: FDA-Public Use
  Company Number: CA-CELLTRION INC.-2021CA002191

PATIENT

DRUGS (16)
  1. ARAVA [Concomitant]
     Active Substance: LEFLUNOMIDE
  2. TYLENOL [Concomitant]
     Active Substance: ACETAMINOPHEN
     Dosage: 650 MG
     Route: 048
  3. HYDROXYCHLOROQUINE SULFATE. [Concomitant]
     Active Substance: HYDROXYCHLOROQUINE SULFATE
  4. CANDESARTAN. [Concomitant]
     Active Substance: CANDESARTAN
  5. ENBREL [Concomitant]
     Active Substance: ETANERCEPT
  6. RITUXIMAB (UNKNOWN) [Suspect]
     Active Substance: RITUXIMAB
     Indication: RHEUMATOID ARTHRITIS
     Dosage: 1000 MG
     Route: 042
  7. PANTOPRAZOLE MAGNESIUM [Concomitant]
     Active Substance: PANTOPRAZOLE MAGNESIUM
  8. METHYLCOBALAMIN. [Concomitant]
     Active Substance: METHYLCOBALAMIN
  9. METHYLPREDNISOLONE SODIUM SUCCINATE. [Concomitant]
     Active Substance: METHYLPREDNISOLONE SODIUM SUCCINATE
     Dosage: 100 MG
     Route: 042
  10. NAPROXEN. [Concomitant]
     Active Substance: NAPROXEN
  11. LEFLUNOMIDE. [Concomitant]
     Active Substance: LEFLUNOMIDE
  12. LORAZEPAM. [Concomitant]
     Active Substance: LORAZEPAM
  13. PREDNISONE. [Concomitant]
     Active Substance: PREDNISONE
  14. AMLODIPINE [Concomitant]
     Active Substance: AMLODIPINE BESYLATE
  15. BENADRYL [Concomitant]
     Active Substance: DIPHENHYDRAMINE HYDROCHLORIDE
     Indication: PREMEDICATION
     Dosage: 50 MG
     Route: 048
  16. NORVASK [AMLODIPINE BESILATE] [Concomitant]
     Dosage: UNK

REACTIONS (6)
  - Urinary tract infection [Recovered/Resolved]
  - Blood pressure systolic abnormal [Recovered/Resolved]
  - Eye infection [Recovered/Resolved]
  - Blood pressure fluctuation [Recovered/Resolved]
  - Uveitis [Recovered/Resolved]
  - Heart rate increased [Recovered/Resolved]
